FAERS Safety Report 5818410-4 (Version None)
Quarter: 2008Q3

REPORT INFORMATION
  Report Type: 
  Country: None (occurrence: None)
  Receive Date: 20080718
  Receipt Date: 20080708
  Transmission Date: 20090109
  Serious: Yes (Hospitalization)
  Sender: FDA-Public Use
  Company Number: 2008-02511

PATIENT
  Age: 65 Year
  Sex: Male
  Weight: 41.7 kg

DRUGS (2)
  1. VELCADE [Suspect]
     Indication: MULTIPLE MYELOMA
     Dosage: 1.3 MG/M2, INTRAVENOUS
     Route: 042
     Dates: start: 20080608, end: 20080706
  2. DEXAMETHASONE [Concomitant]

REACTIONS (4)
  - DISORIENTATION [None]
  - INCOHERENT [None]
  - IRRITABILITY [None]
  - REFUSAL OF TREATMENT BY PATIENT [None]
